FAERS Safety Report 4634667-X (Version None)
Quarter: 2005Q2

REPORT INFORMATION
  Report Type: 
  Country: None (occurrence: None)
  Receive Date: 20050411
  Receipt Date: 20050330
  Transmission Date: 20051028
  Serious: Yes (Other)
  Sender: FDA-Public Use
  Company Number: 2005051889

PATIENT
  Age: 23 Year
  Sex: Female
  Weight: 73 kg

DRUGS (4)
  1. NICORETTE [Suspect]
     Indication: SMOKING CESSATION THERAPY
     Dosage: 1 PATCH QD, TRANSDERMAL
     Route: 062
     Dates: start: 20050124, end: 20050222
  2. METHOTREXATE [Concomitant]
  3. FOLIC ACID [Concomitant]
  4. EUGYNON (ETHINYLESTRADIOL, LEVONORGESTREL) [Concomitant]

REACTIONS (2)
  - ABASIA [None]
  - ARTHRALGIA [None]
